FAERS Safety Report 9866009 (Version 2)
Quarter: 2014Q1

REPORT INFORMATION
  Report Type: Spontaneous
  Country: US (occurrence: US)
  Receive Date: 20140203
  Receipt Date: 20140203
  Transmission Date: 20141002
  Serious: No
  Sender: FDA-Public Use
  Company Number: US-ALLERGAN-1313754US

PATIENT
  Age: 66 Year
  Sex: Male

DRUGS (2)
  1. RESTASIS [Suspect]
     Indication: DRY EYE
     Dosage: 2 GTT, BID
     Route: 047
     Dates: end: 20130908
  2. RESTASIS [Suspect]
     Dosage: UNK

REACTIONS (2)
  - Eye irritation [Recovering/Resolving]
  - Vision blurred [Recovering/Resolving]
